FAERS Safety Report 13057940 (Version 1)
Quarter: 2016Q4

REPORT INFORMATION
  Report Type: Spontaneous
  Country: BR (occurrence: BR)
  Receive Date: 20161223
  Receipt Date: 20161223
  Transmission Date: 20170207
  Serious: Yes (Death, Other)
  Sender: FDA-Public Use
  Company Number: BR-ALVOGEN-2016-ALVOGEN-087400

PATIENT
  Age: 57 Year
  Sex: Male

DRUGS (2)
  1. CHLOROQUINE. [Concomitant]
     Active Substance: CHLOROQUINE
     Indication: PLASMODIUM VIVAX INFECTION
  2. PRIMAQUINE [Suspect]
     Active Substance: PRIMAQUINE PHOSPHATE
     Indication: PLASMODIUM VIVAX INFECTION

REACTIONS (4)
  - Haemolysis [Fatal]
  - Anaemia [Fatal]
  - Respiratory distress [Fatal]
  - Acute kidney injury [Fatal]
